FAERS Safety Report 25535429 (Version 1)
Quarter: 2025Q3

REPORT INFORMATION
  Report Type: Spontaneous
  Country: CA (occurrence: CA)
  Receive Date: 20250709
  Receipt Date: 20250709
  Transmission Date: 20251020
  Serious: Yes (Other)
  Sender: NOVARTIS
  Company Number: CA-002147023-NVSC2025CA107396

PATIENT
  Age: 6 Year
  Sex: Male
  Weight: 16 kg

DRUGS (1)
  1. ALPELISIB [Suspect]
     Active Substance: ALPELISIB
     Indication: Malformation venous
     Dosage: 75 MG, QD
     Route: 048
     Dates: start: 20221011, end: 20250617

REACTIONS (2)
  - Growth retardation [Unknown]
  - Off label use [Unknown]
